FAERS Safety Report 8850290 (Version 1)
Quarter: 2012Q4

REPORT INFORMATION
  Report Type: 
  Country: US (occurrence: US)
  Receive Date: 20121019
  Receipt Date: 20121019
  Transmission Date: 20130627
  Serious: No
  Sender: FDA-Public Use
  Company Number: US-PFIZER INC-2012260029

PATIENT
  Age: 81 Year
  Sex: Female
  Weight: 54.42 kg

DRUGS (5)
  1. LIPITOR [Suspect]
     Indication: HYPERLIPIDAEMIA
     Dosage: UNK
     Dates: start: 200412
  2. LIPITOR [Suspect]
     Dosage: 10 mg, daily
     Dates: end: 2012
  3. ATORVASTATIN CALCIUM [Suspect]
     Indication: HYPERLIPIDAEMIA
     Dosage: 10 mg, daily
     Dates: start: 2012
  4. TYLENOL [Concomitant]
     Dosage: UNK, as needed
  5. ASPIRIN [Concomitant]
     Dosage: UNK, as needed

REACTIONS (1)
  - Fatigue [Unknown]
